FAERS Safety Report 17886914 (Version 1)
Quarter: 2020Q2

REPORT INFORMATION
  Report Type: Spontaneous
  Country: US (occurrence: US)
  Receive Date: 20200612
  Receipt Date: 20200612
  Transmission Date: 20200714
  Serious: No
  Sender: FDA-Public Use
  Company Number: US-AUROBINDO-AUR-APL-2019-025244

PATIENT
  Sex: Female

DRUGS (5)
  1. OLANZAPINE TABLETS 20MG [Suspect]
     Active Substance: OLANZAPINE
     Dosage: 10 MILLIGRAM, DAILY
     Route: 065
  2. TADOR [Concomitant]
     Active Substance: DEXKETOPROFEN
     Indication: PRODUCT USED FOR UNKNOWN INDICATION
     Dosage: UNK
     Route: 065
  3. LISINOPRIL. [Concomitant]
     Active Substance: LISINOPRIL
     Indication: PRODUCT USED FOR UNKNOWN INDICATION
     Dosage: UNK
     Route: 065
  4. OLANZAPINE TABLETS 20MG [Suspect]
     Active Substance: OLANZAPINE
     Indication: DEPRESSION
     Dosage: 20 MILLIGRAM, DAILY
     Route: 065
  5. ZOLPIDEM [Concomitant]
     Active Substance: ZOLPIDEM TARTRATE
     Indication: PRODUCT USED FOR UNKNOWN INDICATION
     Dosage: UNK
     Route: 065

REACTIONS (4)
  - Joint swelling [Unknown]
  - Arthralgia [Unknown]
  - Breast swelling [Unknown]
  - Weight increased [Unknown]
